FAERS Safety Report 9015653 (Version 1)
Quarter: 2013Q1

REPORT INFORMATION
  Report Type: Spontaneous
  Country: SE (occurrence: None)
  Receive Date: 20130103
  Receipt Date: 20130103
  Transmission Date: 20140127
  Serious: Yes (Other)
  Sender: FDA-Public Use
  Company Number: DSA_60777_2012

PATIENT
  Sex: Male

DRUGS (8)
  1. VOXRA [Suspect]
     Indication: PRODUCT USED FOR UNKNOWN INDICATION
     Dates: start: 20120417, end: 20121010
  2. ANTI-EPILEPTIC MEDICATION (UNKNOWN) [Concomitant]
  3. OMEPRAZOLE (UNKNOWN) [Concomitant]
  4. LIPITOR (UNKNOWN) [Concomitant]
  5. ERGENYL (UNKNOWN) [Concomitant]
  6. GABAPENTIN (UNKNOWN) [Concomitant]
  7. KEPPRA (UNKNOWN) [Concomitant]
  8. CITODON /00116401/ (UNKNOWN) [Concomitant]

REACTIONS (4)
  - Convulsion [None]
  - Petit mal epilepsy [None]
  - Tongue biting [None]
  - Face injury [None]
